FAERS Safety Report 17504665 (Version 1)
Quarter: 2020Q1

REPORT INFORMATION
  Report Type: Report from Study
  Country: US (occurrence: US)
  Receive Date: 20200305
  Receipt Date: 20200305
  Transmission Date: 20200409
  Serious: Yes (Other)
  Sender: FDA-Public Use
  Company Number: US-JNJFOC-20200236866

PATIENT

DRUGS (1)
  1. GUSELKUMAB [Suspect]
     Active Substance: GUSELKUMAB
     Indication: PSORIASIS
     Route: 058

REACTIONS (22)
  - Cerebrovascular disorder [Unknown]
  - Depression [Unknown]
  - Injection site pruritus [Unknown]
  - Upper respiratory tract infection [Unknown]
  - Nasopharyngitis [Unknown]
  - Injection site oedema [Unknown]
  - Injection site warmth [Unknown]
  - Cardiac disorder [Unknown]
  - Hypersensitivity [Unknown]
  - Herpes zoster [Unknown]
  - Infection [Unknown]
  - Injection site swelling [Unknown]
  - Diarrhoea [Unknown]
  - Liver disorder [Unknown]
  - Mucocutaneous candidiasis [Unknown]
  - Adverse event [Unknown]
  - Headache [Unknown]
  - Neutropenia [Unknown]
  - Neoplasm malignant [Unknown]
  - Injection site erythema [Unknown]
  - Injection site discomfort [Unknown]
  - Injection site pain [Unknown]
